FAERS Safety Report 15172920 (Version 2)
Quarter: 2018Q3

REPORT INFORMATION
  Report Type: Spontaneous
  Country: US (occurrence: US)
  Receive Date: 20180720
  Receipt Date: 20180808
  Transmission Date: 20181010
  Serious: No
  Sender: FDA-Public Use
  Company Number: US-VIFOR (INTERNATIONAL) INC.-VIT-2018-07233

PATIENT
  Sex: Male

DRUGS (12)
  1. FISH OIL [Concomitant]
     Active Substance: FISH OIL
  2. LANTUS [Concomitant]
     Active Substance: INSULIN GLARGINE
  3. NIFEDICAL XL [Concomitant]
     Active Substance: NIFEDIPINE
  4. METFORMIN [Concomitant]
     Active Substance: METFORMIN HYDROCHLORIDE
  5. VELTASSA [Suspect]
     Active Substance: PATIROMER
     Indication: HYPERKALAEMIA
     Route: 048
     Dates: start: 20170113
  6. SERTRALINE [Concomitant]
     Active Substance: SERTRALINE HYDROCHLORIDE
  7. ASPIRIN. [Concomitant]
     Active Substance: ASPIRIN
     Route: 048
     Dates: start: 20170113
  8. FENOFIBRATE. [Concomitant]
     Active Substance: FENOFIBRATE
  9. IRBESARTAN. [Concomitant]
     Active Substance: IRBESARTAN
  10. HUMALOG [Concomitant]
     Active Substance: INSULIN LISPRO
  11. ROSUVASTATIN. [Concomitant]
     Active Substance: ROSUVASTATIN
  12. COLECALCIFEROL [Concomitant]
     Active Substance: CHOLECALCIFEROL

REACTIONS (3)
  - Product physical issue [Unknown]
  - Product colour issue [Unknown]
  - No adverse event [Unknown]
